FAERS Safety Report 10886471 (Version 2)
Quarter: 2015Q2

REPORT INFORMATION
  Report Type: Report from Study
  Country: CA (occurrence: CA)
  Receive Date: 20150304
  Receipt Date: 20150429
  Transmission Date: 20150821
  Serious: Yes (Hospitalization)
  Sender: FDA-Public Use
  Company Number: PHHY2014CA046684

PATIENT
  Age: 72 Year
  Sex: Male

DRUGS (5)
  1. LIPITOR [Concomitant]
     Active Substance: ATORVASTATIN CALCIUM
     Indication: PRODUCT USED FOR UNKNOWN INDICATION
     Dosage: 10 MG EVERY OTHER DAY AND 20 MG THE OTHER DAY
     Route: 065
  2. SANDOSTATIN LAR DEPOT [Suspect]
     Active Substance: OCTREOTIDE ACETATE
     Indication: NEUROENDOCRINE CARCINOMA METASTATIC
     Dosage: 20 MG, ONCE A MONTH
     Route: 030
     Dates: start: 20140121
  3. BISOPROLOL [Concomitant]
     Active Substance: BISOPROLOL
     Indication: PRODUCT USED FOR UNKNOWN INDICATION
     Route: 065
  4. METAMUCIL [Concomitant]
     Active Substance: PLANTAGO SEED
     Indication: PRODUCT USED FOR UNKNOWN INDICATION
     Dosage: OT, QD
     Route: 065
  5. DIOVAN [Concomitant]
     Active Substance: VALSARTAN
     Indication: HYPERTENSION
     Dosage: 1.5 DF, BID
     Route: 065

REACTIONS (18)
  - Blood pressure systolic increased [Recovered/Resolved]
  - Nodule [Not Recovered/Not Resolved]
  - Body temperature decreased [Unknown]
  - Pyrexia [Unknown]
  - Productive cough [Unknown]
  - Cough [Unknown]
  - Muscle spasms [Unknown]
  - Respiratory rate decreased [Unknown]
  - Nasal oedema [Unknown]
  - Pain [Unknown]
  - Oropharyngeal pain [Unknown]
  - Nasal discomfort [Unknown]
  - Respiratory tract infection [Unknown]
  - Asthenia [Unknown]
  - Heart rate increased [Recovered/Resolved]
  - Blood pressure decreased [Unknown]
  - Diarrhoea [Recovered/Resolved]
  - Injection site pain [Unknown]

NARRATIVE: CASE EVENT DATE: 20140414
